FAERS Safety Report 16904981 (Version 6)
Quarter: 2020Q1

REPORT INFORMATION
  Report Type: Spontaneous
  Country: FR (occurrence: FR)
  Receive Date: 20191010
  Receipt Date: 20200204
  Transmission Date: 20200409
  Serious: Yes (Other)
  Sender: FDA-Public Use
  Company Number: FR-009507513-1910FRA007220

PATIENT
  Age: 70 Year
  Sex: Female

DRUGS (17)
  1. MOMETASONE FUROATE. [Suspect]
     Active Substance: MOMETASONE FUROATE
     Dosage: 100 MICROGRAM, QD
     Route: 048
     Dates: start: 20180305
  2. ACETYLCYSTEINE. [Suspect]
     Active Substance: ACETYLCYSTEINE
     Dosage: 40 MG, QD
     Route: 048
     Dates: start: 20180305, end: 20180309
  3. AMOXICILLIN. [Suspect]
     Active Substance: AMOXICILLIN
     Indication: BRONCHITIS
     Dosage: 1 G, QD
     Route: 048
     Dates: start: 20180305, end: 20180310
  4. LEVOTHYROX [Concomitant]
     Active Substance: LEVOTHYROXINE
     Dosage: UNK
  5. MOMETASONE FUROATE. [Suspect]
     Active Substance: MOMETASONE FUROATE
     Dosage: 50 MICROGRAM, QD
     Route: 048
     Dates: start: 20180305
  6. ACETYLCYSTEINE. [Suspect]
     Active Substance: ACETYLCYSTEINE
     Indication: BRONCHITIS
     Dosage: 200 MG, QD
     Route: 048
     Dates: start: 20180305, end: 20180309
  7. MOMETASONE FUROATE. [Suspect]
     Active Substance: MOMETASONE FUROATE
     Dosage: 50 MICROGRAM PER GRAM
     Route: 048
     Dates: start: 20180305
  8. ACETAMINOPHEN. [Suspect]
     Active Substance: ACETAMINOPHEN
     Dosage: 3 GRAM, QD
     Route: 048
     Dates: start: 20180305, end: 20180310
  9. PREDNISONE. [Suspect]
     Active Substance: PREDNISONE
     Indication: BRONCHITIS
     Dosage: 40 MG, QD
     Route: 048
     Dates: start: 20180305, end: 20180307
  10. ACETYLCYSTEINE. [Suspect]
     Active Substance: ACETYLCYSTEINE
     Dosage: 400 MG, QD
     Route: 048
     Dates: start: 20180305, end: 20180309
  11. AMOXICILLIN. [Suspect]
     Active Substance: AMOXICILLIN
     Dosage: 3 UNK
     Dates: start: 20180305
  12. ACETAMINOPHEN. [Suspect]
     Active Substance: ACETAMINOPHEN
     Indication: BRONCHITIS
     Dosage: 3 GRAM PER GRAM
     Route: 048
     Dates: start: 20180305, end: 20180310
  13. ACETAMINOPHEN. [Suspect]
     Active Substance: ACETAMINOPHEN
     Dosage: 1 GRAM, QD
     Route: 048
     Dates: start: 20180305, end: 20180310
  14. PREDNISONE. [Suspect]
     Active Substance: PREDNISONE
     Dosage: 1 GRAM, QD
     Route: 048
     Dates: start: 20180305, end: 20180310
  15. OXOMEMAZINE [Suspect]
     Active Substance: OXOMEMAZINE
     Indication: BRONCHITIS
     Dosage: 160 MG, QD
     Route: 048
     Dates: start: 20180305, end: 20180310
  16. OXOMEMAZINE [Suspect]
     Active Substance: OXOMEMAZINE
     Dosage: 1 G, QD
     Route: 048
     Dates: start: 20180305, end: 20180310
  17. SERESTA [Concomitant]
     Active Substance: OXAZEPAM
     Dosage: UNK

REACTIONS (4)
  - Rash maculo-papular [Recovered/Resolved]
  - Pruritus [Recovered/Resolved]
  - Skin burning sensation [Recovered/Resolved]
  - Rash [Recovered/Resolved]

NARRATIVE: CASE EVENT DATE: 20190309
